FAERS Safety Report 7528887-4 (Version None)
Quarter: 2011Q2

REPORT INFORMATION
  Report Type: 
  Country: None (occurrence: None)
  Receive Date: 20110607
  Receipt Date: 20110525
  Transmission Date: 20111010
  Serious: Yes (Death, Life-Threatening, Hospitalization, Other)
  Sender: FDA-Public Use
  Company Number: FR-JNJFOC-20090706406

PATIENT
  Sex: Male
  Weight: 70 kg

DRUGS (11)
  1. NIMBEX [Concomitant]
     Indication: SEDATION
  2. HEPARIN [Suspect]
     Indication: ANTICOAGULANT THERAPY
  3. LEVOPHED [Concomitant]
     Indication: CARDIOVASCULAR DISORDER
  4. SUFENTA PRESERVATIVE FREE [Concomitant]
     Indication: SEDATION
  5. MIDAZOLAM HYDROCHLORIDE [Concomitant]
     Indication: SEDATION
  6. ZOVIRAX [Concomitant]
     Indication: ANTIBIOTIC THERAPY
  7. IMIPENEM [Suspect]
     Indication: PNEUMONIA
     Route: 041
     Dates: start: 20090703, end: 20090713
  8. PLACEBO [Suspect]
     Indication: PNEUMONIA
     Route: 041
     Dates: start: 20090703, end: 20090710
  9. KETAMINE HCL [Concomitant]
     Indication: SEDATION
  10. SOLU-MEDROL [Suspect]
     Indication: ILL-DEFINED DISORDER
  11. NEXIUM [Concomitant]

REACTIONS (5)
  - RENAL TUBULAR ACIDOSIS [None]
  - MULTI-ORGAN FAILURE [None]
  - GASTRIC HAEMORRHAGE [None]
  - PNEUMONIA KLEBSIELLA [None]
  - ACUTE RESPIRATORY DISTRESS SYNDROME [None]
